FAERS Safety Report 4713334-8 (Version None)
Quarter: 2005Q3

REPORT INFORMATION
  Report Type: 
  Country: None (occurrence: None)
  Receive Date: 20050713
  Receipt Date: 20050706
  Transmission Date: 20060218
  Serious: Yes (Hospitalization)
  Sender: FDA-Public Use
  Company Number: JP-GLAXOSMITHKLINE-B0387063A

PATIENT
  Age: 37 Year
  Sex: Female

DRUGS (2)
  1. VALTREX [Suspect]
     Indication: HERPES SIMPLEX
     Dosage: 500MG TWICE PER DAY
     Route: 048
     Dates: start: 20050615, end: 20050618
  2. NEUROLEPTIC DRUGS (UNSPECIFIED) [Concomitant]
     Indication: HEADACHE
     Route: 048

REACTIONS (1)
  - STEVENS-JOHNSON SYNDROME [None]
